FAERS Safety Report 24564733 (Version 3)
Quarter: 2024Q4

REPORT INFORMATION
  Report Type: Spontaneous
  Country: US (occurrence: US)
  Receive Date: 20241030
  Receipt Date: 20241107
  Transmission Date: 20250114
  Serious: Yes (Hospitalization, Other)
  Sender: CHATTEM
  Company Number: US-MLMSERVICE-20241017-PI230034-00218-1

PATIENT
  Age: 8 Year
  Sex: Male

DRUGS (8)
  1. HYDROCORTISONE [Suspect]
     Active Substance: HYDROCORTISONE
     Indication: B-cell type acute leukaemia
     Dosage: RE-INDUCTION
     Route: 065
  2. VINCRISTINE [Suspect]
     Active Substance: VINCRISTINE
     Indication: B-cell type acute leukaemia
     Dosage: RE-INDUCTION
     Route: 065
  3. DOXORUBICIN [Suspect]
     Active Substance: DOXORUBICIN
     Indication: B-cell type acute leukaemia
     Dosage: RE-INDUCTION
     Route: 065
  4. DEXRAZOXANE [Suspect]
     Active Substance: DEXRAZOXANE
     Indication: B-cell type acute leukaemia
     Dosage: RE-INDUCTION
     Route: 065
  5. VENETOCLAX [Suspect]
     Active Substance: VENETOCLAX
     Indication: B-cell type acute leukaemia
     Dosage: RE-INDUCTION
     Route: 065
  6. RYLAZE [Suspect]
     Active Substance: ASPARAGINASE ERWINIA CHRYSANTHEMI (RECOMBINANT)-RYWN
     Indication: B-cell type acute leukaemia
     Dosage: RE-INDUCTION
     Route: 065
  7. METHOTREXATE [Suspect]
     Active Substance: METHOTREXATE
     Indication: B-cell type acute leukaemia
     Dosage: RE-INDUCTION
     Route: 037
  8. CYTARABINE [Suspect]
     Active Substance: CYTARABINE
     Indication: B-cell type acute leukaemia
     Dosage: RE-INDUCTION
     Route: 065

REACTIONS (9)
  - Bacteraemia [Recovered/Resolved]
  - Febrile neutropenia [Unknown]
  - Skin candida [Recovered/Resolved]
  - Respiratory moniliasis [Recovered/Resolved]
  - Herpes simplex [Recovered/Resolved]
  - Eye infection fungal [Recovered/Resolved]
  - Candida infection [Recovered/Resolved]
  - Cerebral candidiasis [Recovering/Resolving]
  - Systemic candida [Recovered/Resolved]
